FAERS Safety Report 15436003 (Version 1)
Quarter: 2018Q3

REPORT INFORMATION
  Report Type: Spontaneous
  Country: US (occurrence: US)
  Receive Date: 20180924
  Receipt Date: 20180924
  Transmission Date: 20181010
  Serious: Yes (Hospitalization)
  Sender: FDA-Public Use
  Company Number: None

PATIENT
  Age: 63 Year
  Sex: Female

DRUGS (10)
  1. TRIAMTERENE. [Concomitant]
     Active Substance: TRIAMTERENE
  2. XEANTHININ [Concomitant]
  3. D?3 [Concomitant]
     Active Substance: CHOLECALCIFEROL
  4. LUTEIN [Concomitant]
     Active Substance: LUTEIN
  5. ATENOLOL. [Concomitant]
     Active Substance: ATENOLOL
  6. KIRKLAND TRIPLE ACTION JOIN HEALTH [Concomitant]
  7. CITRACEL [Concomitant]
  8. BACTRIM [Suspect]
     Active Substance: SULFAMETHOXAZOLE\TRIMETHOPRIM
     Indication: URINARY TRACT INFECTION
     Route: 048
     Dates: start: 20160115, end: 20160120
  9. CRANBERRY. [Concomitant]
     Active Substance: CRANBERRY
  10. MULTI VITAMIN [Concomitant]
     Active Substance: VITAMINS

REACTIONS (17)
  - Lacrimation increased [None]
  - Enterovirus infection [None]
  - Asthenia [None]
  - Photosensitivity reaction [None]
  - Abdominal pain lower [None]
  - Sepsis [None]
  - Skin exfoliation [None]
  - Rash generalised [None]
  - Blister [None]
  - Stevens-Johnson syndrome [None]
  - Vomiting [None]
  - Blood potassium decreased [None]
  - Alopecia [None]
  - Diarrhoea [None]
  - Fatigue [None]
  - Pain [None]
  - Rash [None]

NARRATIVE: CASE EVENT DATE: 20160121
